FAERS Safety Report 23171294 (Version 1)
Quarter: 2023Q4

REPORT INFORMATION
  Report Type: Spontaneous
  Country: US (occurrence: None)
  Receive Date: 20231110
  Receipt Date: 20231110
  Transmission Date: 20240110
  Serious: Yes (Other)
  Sender: FDA-Public Use
  Company Number: None

PATIENT
  Age: 53 Year
  Sex: Female

DRUGS (1)
  1. PULMOZYME [Suspect]
     Active Substance: DORNASE ALFA
     Dosage: OTHER QUANTITY : 100-50-75/150MG;?FREQUENCY : DAILY;?

REACTIONS (3)
  - Rhinorrhoea [None]
  - Nasal congestion [None]
  - Emphysema [None]

NARRATIVE: CASE EVENT DATE: 20231101
